FAERS Safety Report 21534099 (Version 1)
Quarter: 2022Q4

REPORT INFORMATION
  Report Type: Spontaneous
  Country: US (occurrence: US)
  Receive Date: 20221101
  Receipt Date: 20221101
  Transmission Date: 20230113
  Serious: No
  Sender: FDA-Public Use
  Company Number: US-PARATEK PHARMACEUTICALS, INC.-2021PTK00227

PATIENT
  Age: 40 Year
  Sex: Female

DRUGS (4)
  1. NUZYRA [Suspect]
     Active Substance: OMADACYCLINE
     Indication: Decubitus ulcer
     Dosage: 300 MG, 1X/DAY
     Route: 048
     Dates: start: 20211105
  2. NUZYRA [Suspect]
     Active Substance: OMADACYCLINE
     Indication: Wound infection
     Dosage: 450 MG, 1X/DAY
     Route: 048
     Dates: start: 20211103, end: 20211104
  3. NUZYRA [Suspect]
     Active Substance: OMADACYCLINE
     Indication: Skin infection
  4. NUZYRA [Suspect]
     Active Substance: OMADACYCLINE
     Indication: Osteomyelitis

REACTIONS (2)
  - Faeces discoloured [Not Recovered/Not Resolved]
  - Faeces soft [Not Recovered/Not Resolved]

NARRATIVE: CASE EVENT DATE: 20211101
